FAERS Safety Report 13352370 (Version 9)
Quarter: 2019Q1

REPORT INFORMATION
  Report Type: Report from Study
  Country: DE (occurrence: DE)
  Receive Date: 20170320
  Receipt Date: 20190227
  Transmission Date: 20190417
  Serious: Yes (Other)
  Sender: FDA-Public Use
  Company Number: DE-BIOGEN-2015BI037578

PATIENT
  Age: 53 Year
  Sex: Female

DRUGS (4)
  1. PLEGRIDY [Suspect]
     Active Substance: PEGINTERFERON BETA-1A
     Indication: MULTIPLE SCLEROSIS
     Route: 058
  2. PLEGRIDY [Suspect]
     Active Substance: PEGINTERFERON BETA-1A
     Route: 058
     Dates: end: 20180702
  3. PLEGRIDY [Suspect]
     Active Substance: PEGINTERFERON BETA-1A
     Route: 058
  4. PLEGRIDY [Suspect]
     Active Substance: PEGINTERFERON BETA-1A
     Route: 058
     Dates: start: 20150305, end: 201606

REACTIONS (7)
  - Hypertension [Recovered/Resolved]
  - Injection site rash [Recovered/Resolved]
  - Injection site erythema [Not Recovered/Not Resolved]
  - Liver function test increased [Recovered/Resolved]
  - Pain in extremity [Unknown]
  - Injection site reaction [Recovered/Resolved]
  - Pain [Unknown]

NARRATIVE: CASE EVENT DATE: 20150305
